FAERS Safety Report 15122625 (Version 9)
Quarter: 2024Q3

REPORT INFORMATION
  Report Type: Report from Study
  Country: DE (occurrence: DE)
  Receive Date: 20180709
  Receipt Date: 20240920
  Transmission Date: 20241017
  Serious: Yes (Death, Hospitalization)
  Sender: ABBVIE
  Company Number: DE-ABBVIE-18K-062-2376349-00

PATIENT
  Age: 76 Year
  Sex: Male
  Weight: 72 kg

DRUGS (4)
  1. VENETOCLAX [Suspect]
     Active Substance: VENETOCLAX
     Indication: Chronic lymphocytic leukaemia
     Route: 048
     Dates: start: 20180516, end: 20180522
  2. VENETOCLAX [Suspect]
     Active Substance: VENETOCLAX
     Indication: Chronic lymphocytic leukaemia
     Route: 048
     Dates: start: 20180612, end: 20180619
  3. VENETOCLAX [Suspect]
     Active Substance: VENETOCLAX
     Indication: Chronic lymphocytic leukaemia
     Route: 048
     Dates: start: 20180620, end: 20180628
  4. ALLOPURINOL [Concomitant]
     Active Substance: ALLOPURINOL
     Indication: Product used for unknown indication
     Dates: start: 201705

REACTIONS (6)
  - Condition aggravated [Fatal]
  - General physical health deterioration [Fatal]
  - Tumour lysis syndrome [Recovering/Resolving]
  - Lung infiltration [Unknown]
  - Asthenia [Unknown]
  - Listless [Unknown]

NARRATIVE: CASE EVENT DATE: 20180101
